FAERS Safety Report 11011453 (Version 3)
Quarter: 2016Q2

REPORT INFORMATION
  Report Type: Report from Study
  Country: KR (occurrence: KR)
  Receive Date: 20150410
  Receipt Date: 20160427
  Transmission Date: 20160815
  Serious: Yes (Hospitalization)
  Sender: FDA-Public Use
  Company Number: KR-GILEAD-2015-0147896

PATIENT
  Age: 58 Year
  Sex: Female
  Weight: 55 kg

DRUGS (14)
  1. PENNEL                             /07159001/ [Concomitant]
     Dosage: UNK
     Dates: start: 20140304, end: 20140401
  2. MAGNESIUM OXIDE. [Concomitant]
     Active Substance: MAGNESIUM OXIDE
     Dosage: UNK
     Dates: start: 20141114
  3. GELMA [Concomitant]
     Dosage: UNK
     Dates: start: 20141027, end: 20141106
  4. CURAN [Concomitant]
     Active Substance: RANITIDINE HYDROCHLORIDE
     Dosage: UNK
     Dates: start: 20141027, end: 20141106
  5. MULEX [Concomitant]
     Dosage: UNK
     Dates: start: 20141026, end: 20141106
  6. GASMOTIN [Concomitant]
     Active Substance: MOSAPRIDE CITRATE
     Dosage: UNK
     Dates: start: 20141024, end: 20141106
  7. NEWDIZIME [Concomitant]
     Dosage: UNK
     Dates: start: 20141024, end: 20141029
  8. PHENIRAMIN [Concomitant]
     Dosage: UNK
     Dates: start: 20141025, end: 20141025
  9. ETRAVIL [Concomitant]
     Active Substance: AMITRIPTYLINE HYDROCHLORIDE
     Dosage: UNK
     Dates: start: 20141026, end: 20141106
  10. LEGALON [Concomitant]
     Active Substance: MILK THISTLE
     Dosage: UNK
     Dates: start: 20140304, end: 20140401
  11. LACIDOFIL [Concomitant]
     Active Substance: LACTOBACILLUS ACIDOPHILUS\LACTOBACILLUS RHAMNOSUS
     Dosage: UNK
     Dates: start: 20141114
  12. TENOFOVIR DISOPROXIL FUMARATE. [Suspect]
     Active Substance: TENOFOVIR DISOPROXIL FUMARATE
     Indication: HEPATITIS B
     Dosage: 300 MG, UNK
     Route: 048
     Dates: start: 20140304
  13. CYCIN                              /00697202/ [Concomitant]
     Dosage: UNK
     Dates: start: 20141024, end: 20141029
  14. CIROK                              /00697202/ [Concomitant]
     Dosage: UNK
     Dates: start: 20141029, end: 20141106

REACTIONS (1)
  - Urinary tract infection [Recovered/Resolved]

NARRATIVE: CASE EVENT DATE: 20141024
